FAERS Safety Report 13891513 (Version 2)
Quarter: 2018Q1

REPORT INFORMATION
  Report Type: Spontaneous
  Country: US (occurrence: US)
  Receive Date: 20170822
  Receipt Date: 20180202
  Transmission Date: 20180508
  Serious: Yes (Other)
  Sender: FDA-Public Use
  Company Number: US-PFIZER INC-2017360994

PATIENT
  Age: 79 Year
  Sex: Female
  Weight: 53.7 kg

DRUGS (5)
  1. IBRANCE [Suspect]
     Active Substance: PALBOCICLIB
     Indication: BREAST CANCER METASTATIC
     Dosage: 125MG, CYCLIC (ONCE A DAY FOR 21 DAYS THEN 7 DAYS OFF)
     Route: 048
     Dates: start: 20170719, end: 20170809
  2. IBRANCE [Suspect]
     Active Substance: PALBOCICLIB
     Dosage: 125 MG, CYCLIC (ON FOR 21 DAYS OFF FOR 7 DAYS)
     Route: 048
     Dates: start: 2017
  3. IBRANCE [Suspect]
     Active Substance: PALBOCICLIB
     Dosage: 125MG, CYCLIC
     Route: 048
     Dates: start: 201712, end: 201801
  4. SYNTHROID [Concomitant]
     Active Substance: LEVOTHYROXINE SODIUM
     Indication: THYROID DISORDER
     Dosage: 1 UG, 1X/DAY
     Route: 048
  5. FASLODEX [Concomitant]
     Active Substance: FULVESTRANT
     Dosage: UNK

REACTIONS (2)
  - Rash [Recovering/Resolving]
  - White blood cell count decreased [Recovering/Resolving]

NARRATIVE: CASE EVENT DATE: 2017
